FAERS Safety Report 4472739-3 (Version None)
Quarter: 2004Q4

REPORT INFORMATION
  Report Type: 
  Country: None (occurrence: None)
  Receive Date: 20041012
  Receipt Date: 20041012
  Transmission Date: 20050328
  Serious: Yes (Hospitalization, Other)
  Sender: FDA-Public Use
  Company Number: None

PATIENT
  Age: 52 Year
  Sex: Female

DRUGS (1)
  1. EENOXAPARIN 80 MG QD Q 12H [Suspect]
     Dosage: 80 MG QD Q 12H

REACTIONS (2)
  - HYPOVOLAEMIC SHOCK [None]
  - RETROPERITONEAL HAEMATOMA [None]
